FAERS Safety Report 6090238-2 (Version None)
Quarter: 2009Q1

REPORT INFORMATION
  Report Type: 
  Country: None (occurrence: None)
  Receive Date: 20090224
  Receipt Date: 20081210
  Transmission Date: 20090719
  Serious: No
  Sender: FDA-Public Use
  Company Number: US-ABBOTT-08P-163-0492423-00

PATIENT
  Sex: Female

DRUGS (5)
  1. SIMCOR [Suspect]
     Indication: DRUG USE FOR UNKNOWN INDICATION
  2. ADVAIR HFA [Concomitant]
     Indication: DRUG USE FOR UNKNOWN INDICATION
  3. M.V.I. [Concomitant]
     Indication: DRUG USE FOR UNKNOWN INDICATION
  4. NASONEX [Concomitant]
     Indication: DRUG USE FOR UNKNOWN INDICATION
  5. SPIRIVA [Concomitant]
     Indication: DRUG USE FOR UNKNOWN INDICATION

REACTIONS (1)
  - GASTROOESOPHAGEAL REFLUX DISEASE [None]
